FAERS Safety Report 23253162 (Version 1)
Quarter: 2023Q4

REPORT INFORMATION
  Report Type: Spontaneous
  Country: CA (occurrence: CA)
  Receive Date: 20231202
  Receipt Date: 20231202
  Transmission Date: 20240109
  Serious: Yes (Hospitalization)
  Sender: FDA-Public Use
  Company Number: None

PATIENT
  Age: 22 Year
  Sex: Male
  Weight: 88 kg

DRUGS (8)
  1. CIPRALEX [Suspect]
     Active Substance: ESCITALOPRAM OXALATE
     Indication: Obsessive-compulsive disorder
     Dosage: DAILY DOSE: 20.0 MG, FORM: UNKNOWN
     Route: 048
     Dates: start: 20200305, end: 20200309
  2. CIPRALEX [Suspect]
     Active Substance: ESCITALOPRAM OXALATE
     Indication: Obsessive-compulsive disorder
     Dosage: DAILY DOSE: 10.0 MG, FORM: UNKNOWN
     Route: 048
     Dates: start: 20200310, end: 20200316
  3. CIPRALEX [Suspect]
     Active Substance: ESCITALOPRAM OXALATE
     Indication: Obsessive-compulsive disorder
     Dosage: OVERDOSE: 30MG OF CIPRALEX
     Route: 048
  4. CIPRALEX [Suspect]
     Active Substance: ESCITALOPRAM OXALATE
     Indication: Obsessive-compulsive disorder
     Dosage: DOSE DESC: UNK, FORM: UNKNOWN
     Route: 048
     Dates: start: 20200318, end: 20200320
  5. ABILIFY [Suspect]
     Active Substance: ARIPIPRAZOLE
     Indication: Affective disorder
     Dosage: DAILY DOSE: 30.0 MG
     Route: 048
     Dates: end: 20200309
  6. LITHIUM [Concomitant]
     Active Substance: LITHIUM
     Indication: Product used for unknown indication
     Dosage: DAILY DOSE: 1200.0 MG
     Route: 048
  7. LITHIUM [Concomitant]
     Active Substance: LITHIUM
     Indication: Product used for unknown indication
     Route: 048
  8. QUETIAPINE [Concomitant]
     Active Substance: QUETIAPINE
     Indication: Product used for unknown indication
     Dosage: DAILY DOSE: 100.0 MG
     Route: 048

REACTIONS (5)
  - Euphoric mood [Not Recovered/Not Resolved]
  - Flight of ideas [Not Recovered/Not Resolved]
  - Logorrhoea [Not Recovered/Not Resolved]
  - Mania [Not Recovered/Not Resolved]
  - Off label use [Unknown]
